FAERS Safety Report 4566608-8 (Version None)
Quarter: 2005Q1

REPORT INFORMATION
  Report Type: 
  Country: None (occurrence: None)
  Receive Date: 20050201
  Receipt Date: 20050120
  Transmission Date: 20050727
  Serious: Yes (Death, Hospitalization)
  Sender: FDA-Public Use
  Company Number: CH-BRISTOL-MYERS SQUIBB COMPANY-12832788

PATIENT
  Age: 76 Year
  Sex: Male
  Weight: 46 kg

DRUGS (9)
  1. MAXIPIME [Suspect]
     Indication: PSEUDOMONAS INFECTION
     Dosage: DOSE REDUCED TO 1 GRAM TWICE DAILY ON 24-SEP-2004
     Route: 041
     Dates: start: 20040913, end: 20041003
  2. GARAMYCIN [Suspect]
     Indication: PSEUDOMONAS INFECTION
     Route: 041
     Dates: start: 20040914, end: 20040924
  3. TIENAM [Concomitant]
     Indication: PSEUDOMONAS INFECTION
     Dates: start: 20040907, end: 20040913
  4. ASPIRIN [Concomitant]
     Indication: ESSENTIAL THROMBOCYTHAEMIA
     Route: 048
  5. PANTOZOL [Concomitant]
     Route: 048
  6. CONCOR [Concomitant]
     Route: 048
  7. SYMBICORT [Concomitant]
     Dosage: 0.6 MCG/100 MCG
     Route: 055
  8. SERESTA [Concomitant]
     Route: 048
  9. DAFALGAN EFFER TABS 500 MG [Concomitant]
     Route: 048
     Dates: start: 20040910, end: 20040920

REACTIONS (6)
  - AGGRESSION [None]
  - APHASIA [None]
  - CONFUSIONAL STATE [None]
  - DYSPHAGIA [None]
  - RENAL FAILURE [None]
  - STATUS EPILEPTICUS [None]
